FAERS Safety Report 6291715-1 (Version None)
Quarter: 2009Q3

REPORT INFORMATION
  Report Type: 
  Country: None (occurrence: None)
  Receive Date: 20090730
  Receipt Date: 20090721
  Transmission Date: 20100115
  Serious: Yes (Other)
  Sender: FDA-Public Use
  Company Number: PHHY2009AU18365

PATIENT
  Sex: Male

DRUGS (1)
  1. GLEEVEC [Suspect]

REACTIONS (3)
  - GASTRIC ANTRAL VASCULAR ECTASIA [None]
  - INTERSTITIAL LUNG DISEASE [None]
  - PULMONARY FIBROSIS [None]
